FAERS Safety Report 5124018-9 (Version None)
Quarter: 2006Q3

REPORT INFORMATION
  Report Type: 
  Country: None (occurrence: None)
  Receive Date: 20060808
  Receipt Date: 20050610
  Transmission Date: 20061208
  Serious: Yes (Hospitalization)
  Sender: FDA-Public Use
  Company Number: 200514977US

PATIENT
  Age: 68 Year
  Sex: Female

DRUGS (1)
  1. LASIX [Suspect]
     Indication: CARDIAC FAILURE CONGESTIVE
     Dosage: 80 MG[ A FEW YEARS]

REACTIONS (1)
  - HAEMOLYTIC ANAEMIA [None]
